FAERS Safety Report 7767755-X (Version None)
Quarter: 2011Q3

REPORT INFORMATION
  Report Type: 
  Country: None (occurrence: None)
  Receive Date: 20110922
  Receipt Date: 20110609
  Transmission Date: 20111222
  Serious: No
  Sender: FDA-Public Use
  Company Number: US-ASTRAZENECA-2011SE35716

PATIENT
  Age: 20357 Day
  Sex: Female

DRUGS (6)
  1. SIMVASTATIN [Concomitant]
  2. SEROQUEL XR [Suspect]
     Indication: DEPRESSION
     Route: 048
     Dates: start: 20110201
  3. SEROQUEL XR [Suspect]
     Indication: ANXIETY
     Route: 048
     Dates: start: 20110201
  4. PROZAC [Concomitant]
  5. XANAX [Concomitant]
     Dosage: AS NEEDED
  6. METOPROLOL TARTRATE [Concomitant]

REACTIONS (6)
  - MALAISE [None]
  - NAUSEA [None]
  - HYPERTENSION [None]
  - DRUG DOSE OMISSION [None]
  - HEADACHE [None]
  - VOMITING [None]
